FAERS Safety Report 23991693 (Version 1)
Quarter: 2024Q2

REPORT INFORMATION
  Report Type: Spontaneous
  Country: CA (occurrence: CA)
  Receive Date: 20240619
  Receipt Date: 20240619
  Transmission Date: 20240716
  Serious: Yes (Other)
  Sender: FDA-Public Use
  Company Number: CA-SANDOZ-SDZ2024CA058926

PATIENT
  Sex: Female

DRUGS (1)
  1. HYRIMOZ [Suspect]
     Active Substance: ADALIMUMAB-ADAZ
     Indication: Rheumatoid arthritis
     Dosage: 40MG/0.8ML;EVERY TWO WEEKS
     Route: 058
     Dates: start: 20240323

REACTIONS (3)
  - Rheumatoid arthritis [Unknown]
  - Mental disorder [Unknown]
  - Product dose omission issue [Unknown]
